FAERS Safety Report 13216937 (Version 1)
Quarter: 2017Q1

REPORT INFORMATION
  Report Type: Other
  Country: US (occurrence: US)
  Receive Date: 20170210
  Receipt Date: 20170210
  Transmission Date: 20170428
  Serious: No
  Sender: FDA-Public Use
  Company Number: US-ACORDA-ACO_121239_2016

PATIENT
  Age: 65 Year
  Sex: Male

DRUGS (1)
  1. AMPYRA [Suspect]
     Active Substance: DALFAMPRIDINE
     Indication: GAIT DISTURBANCE
     Dosage: UNK
     Route: 048
     Dates: start: 201601, end: 20160131

REACTIONS (6)
  - Feeling cold [Unknown]
  - Diarrhoea [Unknown]
  - Decreased appetite [Unknown]
  - Gait disturbance [Unknown]
  - Muscle tightness [Unknown]
  - Insomnia [Unknown]

NARRATIVE: CASE EVENT DATE: 201601
